FAERS Safety Report 5027478-7 (Version None)
Quarter: 2006Q2

REPORT INFORMATION
  Report Type: 
  Country: None (occurrence: None)
  Receive Date: 20060501
  Receipt Date: 20051213
  Transmission Date: 20061013
  Serious: No
  Sender: FDA-Public Use
  Company Number: 2005PV005796

PATIENT
  Age: 57 Year
  Sex: Female
  Weight: 93.8946 kg

DRUGS (5)
  1. SYMLIN [Suspect]
     Indication: DIABETES MELLITUS NON-INSULIN-DEPENDENT
     Dosage: 120 MCG, TID, SC
     Route: 058
     Dates: start: 20051202, end: 20051201
  2. SYMLIN [Suspect]
     Indication: DIABETES MELLITUS NON-INSULIN-DEPENDENT
     Dosage: 120 MCG, TID, SC
     Route: 058
     Dates: start: 20051201
  3. HUMALOG [Concomitant]
  4. HUMULIN N [Concomitant]
  5. LANTUS [Concomitant]

REACTIONS (5)
  - ASTHENIA [None]
  - FATIGUE [None]
  - HEADACHE [None]
  - HYPERSOMNIA [None]
  - NAUSEA [None]
